FAERS Safety Report 6902098-5 (Version None)
Quarter: 2010Q3

REPORT INFORMATION
  Report Type: 
  Country: None (occurrence: None)
  Receive Date: 20100803
  Receipt Date: 20080418
  Transmission Date: 20110219
  Serious: No
  Sender: FDA-Public Use
  Company Number: US-PFIZER INC-2008036011

PATIENT
  Age: 53 Year
  Sex: Female
  Weight: 90.7 kg

DRUGS (2)
  1. LYRICA [Suspect]
     Indication: BACK PAIN
     Dates: start: 20070101
  2. ATIVAN [Concomitant]

REACTIONS (2)
  - AGGRESSION [None]
  - FEELING ABNORMAL [None]
